FAERS Safety Report 6484760-4 (Version None)
Quarter: 2009Q4

REPORT INFORMATION
  Report Type: 
  Country: None (occurrence: None)
  Receive Date: 20091209
  Receipt Date: 20090709
  Transmission Date: 20100525
  Serious: No
  Sender: FDA-Public Use
  Company Number: US-AMGEN-KDL350015

PATIENT
  Sex: Male
  Weight: 103.5 kg

DRUGS (5)
  1. ENBREL [Suspect]
     Indication: RHEUMATOID ARTHRITIS
     Route: 058
     Dates: start: 20061105
  2. ARAVA [Suspect]
     Dates: end: 20090301
  3. METHOTREXATE [Concomitant]
  4. LIPITOR [Concomitant]
  5. DYAZIDE [Concomitant]

REACTIONS (2)
  - DRUG TOXICITY [None]
  - NEUROPATHY PERIPHERAL [None]
